FAERS Safety Report 13783732 (Version 1)
Quarter: 2017Q3

REPORT INFORMATION
  Report Type: Spontaneous
  Country: GB (occurrence: GB)
  Receive Date: 20170724
  Receipt Date: 20170724
  Transmission Date: 20171127
  Serious: Yes (Life-Threatening, Hospitalization, Other)
  Sender: FDA-Public Use
  Company Number: GB-TEVA-787386ACC

PATIENT
  Age: 52 Year
  Sex: Male
  Weight: 90.1 kg

DRUGS (57)
  1. SODIUM VALPROATE [Suspect]
     Active Substance: VALPROATE SODIUM
     Indication: EPILEPSY
     Route: 042
  2. GLYCERYL TRINITRATE [Concomitant]
     Active Substance: NITROGLYCERIN
  3. LANSOPRAZOL [Concomitant]
     Active Substance: LANSOPRAZOLE
  4. LOPERAMIDE [Concomitant]
     Active Substance: LOPERAMIDE
  5. METARAMINOL [Concomitant]
     Active Substance: METARAMINOL
  6. MORPHINE SULFATE. [Concomitant]
     Active Substance: MORPHINE SULFATE
  7. PABRINEX [Concomitant]
  8. RISPERIDONE. [Concomitant]
     Active Substance: RISPERIDONE
  9. TRANEXAMIC ACID. [Concomitant]
     Active Substance: TRANEXAMIC ACID
  10. MEROPENEM. [Suspect]
     Active Substance: MEROPENEM
     Indication: PNEUMONIA ASPIRATION
     Dosage: 3 GRAM DAILY;
     Route: 042
     Dates: start: 20170217, end: 20170227
  11. ATRACURIUM [Concomitant]
     Active Substance: ATRACURIUM
  12. CLOBAZAM [Concomitant]
     Active Substance: CLOBAZAM
  13. CYCLIZINE HYDROCHLORIDE [Concomitant]
     Active Substance: CYCLIZINE HYDROCHLORIDE
  14. LEVETIRACETAM. [Concomitant]
     Active Substance: LEVETIRACETAM
     Indication: EPILEPSY
  15. LORAZEPAM. [Concomitant]
     Active Substance: LORAZEPAM
  16. PHOSPHORIC ACID [Concomitant]
     Active Substance: PHOSPHORIC ACID
  17. PROPOFOL. [Concomitant]
     Active Substance: PROPOFOL
  18. RANITIDINE. [Concomitant]
     Active Substance: RANITIDINE
  19. ROCURONIUM [Concomitant]
     Active Substance: ROCURONIUM BROMIDE
  20. TIGECYCLINE. [Concomitant]
     Active Substance: TIGECYCLINE
  21. ATORVASTATIN [Concomitant]
     Active Substance: ATORVASTATIN
  22. FUROSEMIDE. [Concomitant]
     Active Substance: FUROSEMIDE
  23. GENTAMICIN. [Concomitant]
     Active Substance: GENTAMICIN
  24. ZOPICLONE [Concomitant]
     Active Substance: ZOPICLONE
  25. BECLOMETHASONE DIPROPIONATE [Concomitant]
     Active Substance: BECLOMETHASONE DIPROPIONATE
  26. CLOZAPINE. [Concomitant]
     Active Substance: CLOZAPINE
  27. DEXAMETHASONE. [Concomitant]
     Active Substance: DEXAMETHASONE
  28. GASTROGRAFIN [Concomitant]
     Active Substance: DIATRIZOATE MEGLUMINE\DIATRIZOATE SODIUM
  29. HYOSCINE BUTYLBROMIDE [Concomitant]
     Active Substance: BUTYLSCOPOLAMINE
  30. N-ACETYLCYSTEINE [Concomitant]
     Active Substance: ACETYLCYSTEINE
  31. NORADRENALIN [Concomitant]
     Active Substance: NOREPINEPHRINE\NOREPINEPHRINE BITARTRATE
  32. ONDANSETRON [Concomitant]
     Active Substance: ONDANSETRON
  33. PARACETAMOL [Concomitant]
     Active Substance: ACETAMINOPHEN
  34. SOLIFENACIN [Concomitant]
     Active Substance: SOLIFENACIN
  35. CHLORPHENAMINE [Concomitant]
     Active Substance: CHLORPHENIRAMINE MALEATE
  36. CITALOPRAM [Concomitant]
     Active Substance: CITALOPRAM HYDROBROMIDE
  37. ERYTHROMYCIN. [Concomitant]
     Active Substance: ERYTHROMYCIN
  38. FORCEVAL [Concomitant]
     Active Substance: FOLIC ACID\IRON\MINERALS\VITAMINS
  39. LEVOTHYROXINE. [Concomitant]
     Active Substance: LEVOTHYROXINE
  40. MAGNESIUM [Concomitant]
     Active Substance: MAGNESIUM
  41. SALBUTAMOL [Concomitant]
     Active Substance: ALBUTEROL
  42. THIAMINE. [Concomitant]
     Active Substance: THIAMINE
  43. AMIODARONE [Concomitant]
     Active Substance: AMIODARONE
  44. ERTAPENEM [Concomitant]
     Active Substance: ERTAPENEM
     Dates: start: 20170206, end: 20170217
  45. POTASSIUM CHLORIDE. [Concomitant]
     Active Substance: POTASSIUM CHLORIDE
  46. TINZAPARIN [Concomitant]
     Active Substance: TINZAPARIN
  47. FENTANIL [Concomitant]
     Active Substance: FENTANYL
  48. PHYTOMENADIONE [Concomitant]
     Active Substance: PHYTONADIONE
  49. TEICOPLANIN [Concomitant]
     Active Substance: TEICOPLANIN
  50. CALCIUM GLUCONATE. [Concomitant]
     Active Substance: CALCIUM GLUCONATE
  51. CODEINE PHOSPHATE [Concomitant]
     Active Substance: CODEINE PHOSPHATE
  52. HALOPERIDOL. [Concomitant]
     Active Substance: HALOPERIDOL
  53. LIOTHYRONINE SODIUM. [Concomitant]
     Active Substance: LIOTHYRONINE SODIUM
  54. OMEPRAZOLE SODIUM [Concomitant]
     Active Substance: OMEPRAZOLE SODIUM
  55. PHENYTOIN. [Concomitant]
     Active Substance: PHENYTOIN
  56. PIPERACILLIN AND TAZOBACTAM [Concomitant]
     Active Substance: PIPERACILLIN SODIUM\TAZOBACTAM SODIUM
  57. QUETIAPINE. [Concomitant]
     Active Substance: QUETIAPINE

REACTIONS (2)
  - Inhibitory drug interaction [Unknown]
  - Status epilepticus [Unknown]

NARRATIVE: CASE EVENT DATE: 20170225
